FAERS Safety Report 7571206-8 (Version None)
Quarter: 2011Q2

REPORT INFORMATION
  Report Type: 
  Country: None (occurrence: None)
  Receive Date: 20110624
  Receipt Date: 20110615
  Transmission Date: 20111010
  Serious: Yes (Hospitalization)
  Sender: FDA-Public Use
  Company Number: A0855993A

PATIENT
  Sex: Female
  Weight: 166 kg

DRUGS (5)
  1. PEG-INTRON [Suspect]
     Dosage: 120UG WEEKLY
     Route: 058
     Dates: start: 20100223
  2. ARIPIPRAZOLE [Concomitant]
     Dosage: 5MG PER DAY
  3. ELTROMBOPAG [Suspect]
     Indication: THROMBOCYTOPENIA
     Route: 048
     Dates: start: 20100202, end: 20100222
  4. ELTROMBOPAG [Suspect]
     Route: 048
     Dates: start: 20100223
  5. REBETOL [Suspect]
     Route: 048
     Dates: start: 20100223

REACTIONS (4)
  - PORTAL VEIN THROMBOSIS [None]
  - MESENTERIC VEIN THROMBOSIS [None]
  - HEPATIC ENCEPHALOPATHY [None]
  - GASTROINTESTINAL HAEMORRHAGE [None]
